FAERS Safety Report 9685429 (Version 1)
Quarter: 2013Q4

REPORT INFORMATION
  Report Type: Spontaneous
  Country: US (occurrence: None)
  Receive Date: 20131112
  Receipt Date: 20131112
  Transmission Date: 20140711
  Serious: No
  Sender: FDA-Public Use
  Company Number: None

PATIENT
  Age: 44 Year
  Sex: Male
  Weight: 129.73 kg

DRUGS (3)
  1. NORCO [Suspect]
     Indication: INTERVERTEBRAL DISC DEGENERATION
     Route: 048
     Dates: start: 20131108, end: 20131109
  2. NORCO [Suspect]
     Indication: SPINAL OSTEOARTHRITIS
     Route: 048
     Dates: start: 20131108, end: 20131109
  3. NORCO [Suspect]
     Indication: RADICULITIS
     Route: 048
     Dates: start: 20131108, end: 20131109

REACTIONS (5)
  - Vomiting [None]
  - Muscle spasms [None]
  - Headache [None]
  - Malaise [None]
  - Product substitution issue [None]
